FAERS Safety Report 6368230-X (Version None)
Quarter: 2009Q3

REPORT INFORMATION
  Report Type: 
  Country: None (occurrence: None)
  Receive Date: 20090922
  Receipt Date: 20090918
  Transmission Date: 20100115
  Serious: Yes (Hospitalization)
  Sender: FDA-Public Use
  Company Number: US-BRISTOL-MYERS SQUIBB COMPANY-14785794

PATIENT
  Age: 71 Year
  Sex: Male
  Weight: 82 kg

DRUGS (15)
  1. CARBOPLATIN [Suspect]
     Indication: NON-SMALL CELL LUNG CANCER
     Dates: start: 20090225, end: 20090610
  2. PACLITAXEL [Suspect]
     Indication: NON-SMALL CELL LUNG CANCER
     Dates: start: 20090225, end: 20090610
  3. CP-751,871 [Suspect]
     Indication: NON-SMALL CELL LUNG CANCER
     Dates: start: 20090225, end: 20090812
  4. PANTOPRAZOLE SODIUM [Concomitant]
  5. METFORMIN HCL [Concomitant]
     Indication: DIABETES MELLITUS
  6. CALCIUM CARBONATE + COLECALCIFEROL [Concomitant]
     Dosage: COLECALCIFEROL 400 IU
     Dates: start: 20081001
  7. ASPIRIN [Concomitant]
     Dates: start: 20070101
  8. TRAMADOL HCL [Concomitant]
     Indication: ARTHRALGIA
     Dates: start: 20050101
  9. TELMISARTAN [Concomitant]
     Dates: start: 20070101
  10. PRAVASTATIN [Concomitant]
  11. LANSOPRAZOLE [Concomitant]
     Dates: start: 20040101
  12. PARACETAMOL [Concomitant]
     Dates: start: 20070101
  13. DICLOFENAC [Concomitant]
  14. METAMIZOLE [Concomitant]
     Dates: start: 20090304
  15. METOCLOPRAMIDE [Concomitant]
     Dates: start: 20090225

REACTIONS (3)
  - ASTHENIA [None]
  - HYPOTENSION [None]
  - VOMITING [None]
